FAERS Safety Report 22357157 (Version 1)
Quarter: 2023Q2

REPORT INFORMATION
  Report Type: Spontaneous
  Country: US (occurrence: None)
  Receive Date: 20230524
  Receipt Date: 20230524
  Transmission Date: 20230721
  Serious: Yes (Other)
  Sender: FDA-Public Use
  Company Number: US-Orexo US, Inc.-ORE202305-000023

PATIENT
  Sex: Male

DRUGS (1)
  1. ZUBSOLV [Suspect]
     Active Substance: BUPRENORPHINE HYDROCHLORIDE\NALOXONE HYDROCHLORIDE
     Indication: Drug dependence
     Dosage: 5.7 MG- BEGAN A FEW MONTHS AGO.

REACTIONS (4)
  - Road traffic accident [Unknown]
  - Multiple fractures [Unknown]
  - Skin injury [Unknown]
  - Product dose omission issue [Unknown]
